FAERS Safety Report 10426699 (Version 3)
Quarter: 2015Q1

REPORT INFORMATION
  Report Type: Spontaneous
  Country: US (occurrence: None)
  Receive Date: 20140722
  Receipt Date: 20150120
  Transmission Date: 20150720
  Serious: No
  Sender: FDA-Public Use
  Company Number: AEGR000541

PATIENT
  Age: 54 Year
  Sex: Male
  Weight: 126.1 kg

DRUGS (7)
  1. GABAPENTIN (GABAPENTIN) [Concomitant]
     Active Substance: GABAPENTIN
  2. B12 (CYANOCOBALAMIN) [Concomitant]
  3. ASPIRIN. [Concomitant]
     Active Substance: ASPIRIN
  4. OMEGA 3-6-9 (FISH OIL, TOCOPHEROL) [Concomitant]
  5. JUXTAPID [Suspect]
     Active Substance: LOMITAPIDE MESYLATE
     Indication: TYPE IIA HYPERLIPIDAEMIA
     Route: 048
     Dates: start: 201306, end: 201406
  6. NIACIN (NICOTINIC ACID) [Concomitant]
  7. LOTREL (AMLODIPINE BESILATE, BENAZEPRIL HYDROCHLORIDE) [Concomitant]

REACTIONS (1)
  - Arthralgia [None]
